FAERS Safety Report 12551908 (Version 1)
Quarter: 2016Q3

REPORT INFORMATION
  Report Type: Spontaneous
  Country: US (occurrence: US)
  Receive Date: 20160713
  Receipt Date: 20160713
  Transmission Date: 20161109
  Serious: No
  Sender: FDA-Public Use
  Company Number: US-BEH-2016070468

PATIENT
  Age: 56 Year
  Sex: Male
  Weight: 88.44 kg

DRUGS (25)
  1. HIZENTRA [Suspect]
     Active Substance: HUMAN IMMUNOGLOBULIN G
     Dosage: UNK
     Route: 058
  2. HIZENTRA [Suspect]
     Active Substance: HUMAN IMMUNOGLOBULIN G
     Indication: IMMUNODEFICIENCY COMMON VARIABLE
     Dosage: UNK
     Route: 058
  3. FLONASE [Concomitant]
     Active Substance: FLUTICASONE PROPIONATE
  4. ZYRTEC [Concomitant]
     Active Substance: CETIRIZINE HYDROCHLORIDE
  5. ACETAMINOPHEN. [Concomitant]
     Active Substance: ACETAMINOPHEN
  6. EPIPEN [Concomitant]
     Active Substance: EPINEPHRINE
  7. LYRICA [Concomitant]
     Active Substance: PREGABALIN
  8. PROVENTIL [Concomitant]
     Active Substance: ALBUTEROL
  9. ASTEPRO [Concomitant]
     Active Substance: AZELASTINE HYDROCHLORIDE
  10. FIORICET [Concomitant]
     Active Substance: ACETAMINOPHEN\BUTALBITAL\CAFFEINE
  11. HIZENTRA [Suspect]
     Active Substance: HUMAN IMMUNOGLOBULIN G
     Dosage: 14 G, QW
     Route: 058
  12. AZELASTINE [Concomitant]
     Active Substance: AZELASTINE
  13. SYNTHROID [Concomitant]
     Active Substance: LEVOTHYROXINE SODIUM
  14. CLONAZEPAM. [Concomitant]
     Active Substance: CLONAZEPAM
  15. AMITRIPTYLINE [Concomitant]
     Active Substance: AMITRIPTYLINE
  16. DIPHENHYDRAMINE. [Concomitant]
     Active Substance: DIPHENHYDRAMINE
  17. VICODIN [Concomitant]
     Active Substance: ACETAMINOPHEN\HYDROCODONE BITARTRATE
  18. PROPRANOLOL [Concomitant]
     Active Substance: PROPRANOLOL\PROPRANOLOL HYDROCHLORIDE
  19. CAMBIA [Concomitant]
     Active Substance: DICLOFENAC POTASSIUM
  20. VITAMIN D2 [Concomitant]
     Active Substance: ERGOCALCIFEROL
  21. NASONEX [Concomitant]
     Active Substance: MOMETASONE FUROATE
  22. PREVACID [Concomitant]
     Active Substance: LANSOPRAZOLE
  23. PULMICORT TURBUHALER [Concomitant]
     Active Substance: BUDESONIDE
  24. AMITIZA [Concomitant]
     Active Substance: LUBIPROSTONE
  25. LIDOCAINE. [Concomitant]
     Active Substance: LIDOCAINE

REACTIONS (1)
  - Headache [Recovering/Resolving]

NARRATIVE: CASE EVENT DATE: 20160326
